FAERS Safety Report 17073441 (Version 11)
Quarter: 2022Q3

REPORT INFORMATION
  Report Type: Spontaneous
  Country: CZ (occurrence: CZ)
  Receive Date: 20191126
  Receipt Date: 20220903
  Transmission Date: 20221027
  Serious: Yes (Hospitalization, Other)
  Sender: FDA-Public Use
  Company Number: CZ-MYLANLABS-2019M1108209

PATIENT
  Age: 67 Year
  Sex: Female
  Weight: 78 kg

DRUGS (21)
  1. ZOLPIDEM TARTRATE [Suspect]
     Active Substance: ZOLPIDEM TARTRATE
     Indication: Antidepressant therapy
     Dosage: 10 MILLIGRAM, ONCE A DAY
     Route: 048
  2. ZOLPIDEM TARTRATE [Suspect]
     Active Substance: ZOLPIDEM TARTRATE
     Indication: Anxiety
     Dosage: 20 MILLIGRAM, ONCE A DAY
     Route: 048
  3. ZOLPIDEM TARTRATE [Suspect]
     Active Substance: ZOLPIDEM TARTRATE
     Indication: Insomnia
     Dosage: 30 MILLIGRAM, ONCE A DAY
     Route: 048
  4. ZOLPIDEM TARTRATE [Suspect]
     Active Substance: ZOLPIDEM TARTRATE
     Indication: Hyposomnia
     Dosage: 10 MILLIGRAM, 3 TIMES A DAY
     Route: 048
  5. ZOLPIDEM TARTRATE [Suspect]
     Active Substance: ZOLPIDEM TARTRATE
     Indication: Middle insomnia
     Dosage: 35 MILLIGRAM, ONCE A DAY
     Route: 048
  6. ACETAMINOPHEN [Concomitant]
     Active Substance: ACETAMINOPHEN
     Indication: Analgesic therapy
     Dosage: UNK
     Route: 065
  7. ACETAMINOPHEN [Concomitant]
     Active Substance: ACETAMINOPHEN
     Indication: Back pain
     Dosage: 1-2 TABLETS
  8. ACETAMINOPHEN [Concomitant]
     Active Substance: ACETAMINOPHEN
     Indication: Pain
  9. GUAIFENESIN [Concomitant]
     Active Substance: GUAIFENESIN
     Indication: Productive cough
     Dosage: UNK
     Route: 065
  10. GUAIFENESIN [Concomitant]
     Active Substance: GUAIFENESIN
     Indication: Muscle relaxant therapy
  11. GUAIFENESIN [Concomitant]
     Active Substance: GUAIFENESIN
     Indication: Anxiolytic therapy
  12. GUAIFENESIN [Concomitant]
     Active Substance: GUAIFENESIN
     Indication: Pain
  13. GUAIFENESIN [Concomitant]
     Active Substance: GUAIFENESIN
     Indication: Back pain
  14. METFORMIN [Concomitant]
     Active Substance: METFORMIN HYDROCHLORIDE
     Indication: Diabetes mellitus
     Dosage: UNK
     Route: 065
  15. METFORMIN [Concomitant]
     Active Substance: METFORMIN HYDROCHLORIDE
     Indication: Type 2 diabetes mellitus
  16. KOFFEIN [Concomitant]
     Indication: Central nervous system stimulation
     Dosage: UNK
     Route: 065
  17. KOFFEIN [Concomitant]
     Indication: Back pain
  18. KOFFEIN [Concomitant]
     Indication: Pain
  19. INSULIN NOS [Concomitant]
     Active Substance: INSULIN NOS
     Indication: Diabetes mellitus
     Dosage: UNK
     Route: 065
  20. INSULIN NOS [Concomitant]
     Active Substance: INSULIN NOS
     Indication: Type 2 diabetes mellitus
  21. GUAIFENESIN;PARACETAMOL [Concomitant]
     Indication: Product used for unknown indication
     Dosage: UNK
     Route: 065

REACTIONS (18)
  - Suicidal ideation [Recovered/Resolved]
  - Depressed mood [Recovering/Resolving]
  - Psychomotor skills impaired [Unknown]
  - Bulimia nervosa [Unknown]
  - Psychomotor retardation [Recovered/Resolved]
  - Therapeutic product effect decreased [Recovered/Resolved]
  - Fatigue [Unknown]
  - Anxiety [Recovered/Resolved]
  - Abulia [Unknown]
  - Anhedonia [Unknown]
  - Decreased appetite [Unknown]
  - Terminal insomnia [Recovered/Resolved]
  - Depression [Recovered/Resolved]
  - Therapeutic product effect incomplete [Unknown]
  - Drug ineffective [Recovered/Resolved]
  - Intentional product misuse [Unknown]
  - Insomnia [Unknown]
  - Intentional product use issue [Recovered/Resolved]
